FAERS Safety Report 4393626-5 (Version None)
Quarter: 2004Q3

REPORT INFORMATION
  Report Type: 
  Country: None (occurrence: None)
  Receive Date: 20040709
  Receipt Date: 20040701
  Transmission Date: 20050211
  Serious: Yes (Other)
  Sender: FDA-Public Use
  Company Number: 200412586FR

PATIENT
  Age: 58 Year
  Sex: Female

DRUGS (5)
  1. KETEK [Suspect]
     Indication: NASOPHARYNGITIS
     Route: 048
     Dates: start: 20040426
  2. ATURGYL [Concomitant]
     Dates: start: 20040426
  3. CARBOCISTEINE [Concomitant]
     Dates: start: 20040426
  4. VENTOLINE AEROSOL [Concomitant]
     Dates: start: 20040426
  5. OROPIVALONE [Concomitant]
     Dates: start: 20040426

REACTIONS (1)
  - ANOSMIA [None]
